FAERS Safety Report 18128442 (Version 1)
Quarter: 2020Q3

REPORT INFORMATION
  Report Type: Spontaneous
  Country: US (occurrence: US)
  Receive Date: 20200810
  Receipt Date: 20200810
  Transmission Date: 20201103
  Serious: Yes (Death, Hospitalization)
  Sender: FDA-Public Use
  Company Number: None

PATIENT
  Age: 65 Year
  Sex: Male
  Weight: 86.1 kg

DRUGS (10)
  1. REMDESIVIR. [Suspect]
     Active Substance: REMDESIVIR
     Indication: COVID-19
     Route: 041
     Dates: start: 20200803, end: 20200806
  2. LEVETIRACETAM. [Concomitant]
     Active Substance: LEVETIRACETAM
     Dates: start: 20200730, end: 20200807
  3. DEXAMETHASONE. [Concomitant]
     Active Substance: DEXAMETHASONE
     Dates: start: 20200804, end: 20200808
  4. ENOXAPARIN [Concomitant]
     Active Substance: ENOXAPARIN
     Dates: start: 20200804, end: 20200806
  5. FUROSEMIDE. [Concomitant]
     Active Substance: FUROSEMIDE
     Dates: start: 20200803, end: 20200803
  6. ACETAMINOPHEN. [Concomitant]
     Active Substance: ACETAMINOPHEN
     Dates: start: 20200729, end: 20200808
  7. LACTULOSE. [Concomitant]
     Active Substance: LACTULOSE
     Dates: start: 20200801, end: 20200808
  8. OMEPRAZOLE. [Concomitant]
     Active Substance: OMEPRAZOLE
     Dates: start: 20200807, end: 20200808
  9. RIFAXIMIN. [Concomitant]
     Active Substance: RIFAXIMIN
     Dates: start: 20200729, end: 20200808
  10. ONDANSETRON [Concomitant]
     Active Substance: ONDANSETRON
     Dates: start: 20200801, end: 20200808

REACTIONS (9)
  - Multiple organ dysfunction syndrome [None]
  - Metabolic acidosis [None]
  - Anuria [None]
  - Aspartate aminotransferase increased [None]
  - Blood lactic acid increased [None]
  - Chest pain [None]
  - Electrocardiogram ST segment elevation [None]
  - Cardiac arrest [None]
  - Thrombosis [None]

NARRATIVE: CASE EVENT DATE: 20200807
